FAERS Safety Report 9820208 (Version 1)
Quarter: 2013Q4

REPORT INFORMATION
  Report Type: Spontaneous
  Country: US (occurrence: None)
  Receive Date: 20131223
  Receipt Date: 20131223
  Transmission Date: 20140711
  Serious: No
  Sender: FDA-Public Use
  Company Number: 221087

PATIENT
  Age: 53 Year
  Sex: Female

DRUGS (2)
  1. PICATO [Suspect]
     Indication: ACTINIC KERATOSIS
     Dosage: 1/DAY X 2 DAYS, TOPICAL
     Route: 061
     Dates: start: 20130319
  2. ESTROGEN PATCH [Concomitant]

REACTIONS (1)
  - Application site vesicles [None]
